FAERS Safety Report 6172029-7 (Version None)
Quarter: 2009Q2

REPORT INFORMATION
  Report Type: 
  Country: None (occurrence: None)
  Receive Date: 20090428
  Receipt Date: 20090428
  Transmission Date: 20091009
  Serious: Yes (Hospitalization)
  Sender: FDA-Public Use
  Company Number: None

PATIENT
  Age: 78 Year
  Sex: Male
  Weight: 99.7913 kg

DRUGS (1)
  1. FLOMAX [Suspect]
     Indication: URINARY TRACT DISORDER
     Dosage: 1 CAPSULE DAILY PO
     Route: 048
     Dates: start: 20080401, end: 20090325

REACTIONS (2)
  - ARTERIAL OCCLUSIVE DISEASE [None]
  - VERTIGO [None]
